FAERS Safety Report 7902953-3 (Version None)
Quarter: 2011Q4

REPORT INFORMATION
  Report Type: 
  Country: None (occurrence: None)
  Receive Date: 20111109
  Receipt Date: 20111028
  Transmission Date: 20120403
  Serious: Yes (Hospitalization)
  Sender: FDA-Public Use
  Company Number: GB-JNJFOC-20111010796

PATIENT
  Sex: Male
  Weight: 30.2 kg

DRUGS (3)
  1. METHOTREXATE [Concomitant]
     Indication: CROHN'S DISEASE
  2. ADALIMUMAB [Concomitant]
     Indication: CROHN'S DISEASE
     Dates: start: 20110919
  3. REMICADE [Suspect]
     Indication: CROHN'S DISEASE
     Route: 042
     Dates: start: 20100219, end: 20110317

REACTIONS (1)
  - CROHN'S DISEASE [None]
